FAERS Safety Report 7794878 (Version 3)
Quarter: 2014Q2

REPORT INFORMATION
  Report Type: Report from Study
  Country: US (occurrence: US)
  Receive Date: 20110201
  Receipt Date: 20140610
  Transmission Date: 20141212
  Serious: Yes (Hospitalization)
  Sender: FDA-Public Use
  Company Number: US-JNJFOC-20110106441

PATIENT
  Age: 54 Year
  Sex: Female
  Weight: 68.04 kg

DRUGS (4)
  1. USTEKINUMAB [Suspect]
     Indication: PSORIASIS
     Route: 058
     Dates: start: 20100319, end: 20140505
  2. METHOTREXATE [Suspect]
     Indication: PSORIASIS
     Route: 048
  3. TEMOVATE [Concomitant]
  4. TACLONEX [Concomitant]

REACTIONS (1)
  - Papillary thyroid cancer [Recovered/Resolved]
